FAERS Safety Report 20784218 (Version 2)
Quarter: 2022Q2

REPORT INFORMATION
  Report Type: Spontaneous
  Country: US (occurrence: US)
  Receive Date: 20220504
  Receipt Date: 20220525
  Transmission Date: 20220721
  Serious: No
  Sender: FDA-Public Use
  Company Number: US-ORGANON-O2204USA002117

PATIENT
  Sex: Female
  Weight: 111.57 kg

DRUGS (1)
  1. NEXPLANON [Suspect]
     Active Substance: ETONOGESTREL
     Indication: Contraception
     Dosage: 1 IMPLANT, 68 MG
     Route: 059
     Dates: start: 20220323, end: 20220425

REACTIONS (7)
  - Impaired healing [Unknown]
  - Scar [Unknown]
  - Implant site infection [Unknown]
  - Implant site erythema [Unknown]
  - Implant site inflammation [Unknown]
  - Implant site swelling [Unknown]
  - Implant site pain [Unknown]

NARRATIVE: CASE EVENT DATE: 20220101
